FAERS Safety Report 14965902 (Version 1)
Quarter: 2018Q2

REPORT INFORMATION
  Report Type: Spontaneous
  Country: US (occurrence: US)
  Receive Date: 20180602
  Receipt Date: 20180602
  Transmission Date: 20180711
  Serious: Yes (Death, Life-Threatening)
  Sender: FDA-Public Use
  Company Number: US-TEVA-2018-US-901556

PATIENT
  Sex: Male

DRUGS (1)
  1. AMIODARONE [Suspect]
     Active Substance: AMIODARONE
     Indication: ATRIAL FIBRILLATION

REACTIONS (10)
  - Blindness [Unknown]
  - Visual field defect [Unknown]
  - Vision blurred [Unknown]
  - Optic nerve injury [Unknown]
  - Dizziness [Unknown]
  - Coordination abnormal [Unknown]
  - Visual acuity reduced [Unknown]
  - Headache [Unknown]
  - Death [Fatal]
  - Off label use [Unknown]

NARRATIVE: CASE EVENT DATE: 201703
